FAERS Safety Report 9860053 (Version 2)
Quarter: 2014Q1

REPORT INFORMATION
  Report Type: Spontaneous
  Country: CA (occurrence: CA)
  Receive Date: 20140131
  Receipt Date: 20140131
  Transmission Date: 20141002
  Serious: Yes (Life-Threatening, Hospitalization)
  Sender: FDA-Public Use
  Company Number: CA-ASTRAZENECA-2013SE89029

PATIENT
  Age: 56 Year
  Sex: Female
  Weight: 63.5 kg

DRUGS (5)
  1. SEROQUEL [Suspect]
     Indication: ANXIETY
     Route: 048
  2. SEROQUEL [Suspect]
     Indication: ANXIETY
     Route: 048
  3. FLUANXOL [Suspect]
     Indication: ANXIETY
     Route: 065
  4. HALDOL [Suspect]
     Indication: ANXIETY
     Route: 065
  5. ZYPREXA [Suspect]
     Indication: ANXIETY
     Route: 065

REACTIONS (6)
  - Suicidal ideation [Recovered/Resolved]
  - Decreased appetite [Recovered/Resolved]
  - Depression [Recovered/Resolved]
  - Apathy [Recovered/Resolved]
  - Fatigue [Recovered/Resolved]
  - Somnolence [Recovered/Resolved]
